FAERS Safety Report 8204684-1 (Version None)
Quarter: 2012Q1

REPORT INFORMATION
  Report Type: 
  Country: None (occurrence: None)
  Receive Date: 20120313
  Receipt Date: 20120311
  Transmission Date: 20120608
  Serious: Yes (Hospitalization)
  Sender: FDA-Public Use
  Company Number: US-PFIZER INC-2012064534

PATIENT
  Sex: Female
  Weight: 61.224 kg

DRUGS (5)
  1. LIPITOR [Suspect]
     Indication: ISCHAEMIC HEART DISEASE PROPHYLAXIS
     Dosage: 20 MG, DAILY, IN EVENING
     Dates: start: 20120219
  2. LIPITOR [Suspect]
     Indication: CEREBROVASCULAR ACCIDENT PROPHYLAXIS
  3. LOSARTAN POTASSIUM [Suspect]
     Indication: HYPERTENSION
     Dosage: 100 MG, DAILY
  4. METOPROLOL [Suspect]
     Indication: HYPERTENSION
     Dosage: 25 MG, DAILY
     Route: 048
     Dates: end: 20120101
  5. LOSARTAN POTASSIUM [Suspect]
     Dosage: 50 MG, DAILY

REACTIONS (9)
  - APPETITE DISORDER [None]
  - POLLAKIURIA [None]
  - COUGH [None]
  - DRUG DOSE OMISSION [None]
  - NAUSEA [None]
  - RHINORRHOEA [None]
  - DECREASED APPETITE [None]
  - MYOCARDIAL INFARCTION [None]
  - FATIGUE [None]
